FAERS Safety Report 8374573 (Version 3)
Quarter: 2013Q1

REPORT INFORMATION
  Report Type: Spontaneous
  Country: US (occurrence: US)
  Receive Date: 20120130
  Receipt Date: 20130205
  Transmission Date: 20140127
  Serious: No
  Sender: FDA-Public Use
  Company Number: US-PFIZER INC-2012019366

PATIENT
  Age: 62 Year
  Sex: Female

DRUGS (1)
  1. DRUG, UNSPECIFIED [Suspect]
     Indication: BREAST CANCER FEMALE
     Dosage: 25 MG, 1X/DAY
     Dates: start: 20111104

REACTIONS (1)
  - Migraine [Unknown]
